FAERS Safety Report 19799345 (Version 1)
Quarter: 2021Q3

REPORT INFORMATION
  Report Type: Report from Study
  Country: US (occurrence: US)
  Receive Date: 20210907
  Receipt Date: 20210907
  Transmission Date: 20211014
  Serious: Yes (Hospitalization, Other)
  Sender: FDA-Public Use
  Company Number: US-INCYTE CORPORATION-2021IN007885

PATIENT

DRUGS (1)
  1. JAKAFI [Suspect]
     Active Substance: RUXOLITINIB
     Indication: POLYCYTHAEMIA VERA
     Dosage: 15 MILLIGRAM, BID
     Route: 048
     Dates: end: 202106

REACTIONS (3)
  - Product availability issue [Unknown]
  - Blood count abnormal [Unknown]
  - Hypertensive encephalopathy [Not Recovered/Not Resolved]

NARRATIVE: CASE EVENT DATE: 202106
